FAERS Safety Report 9279516 (Version 1)
Quarter: 2013Q2

REPORT INFORMATION
  Report Type: Spontaneous
  Country: US (occurrence: US)
  Receive Date: 20130509
  Receipt Date: 20130509
  Transmission Date: 20140414
  Serious: No
  Sender: FDA-Public Use
  Company Number: US-B.I. PHARMACEUTICALS,INC./RIDGEFIELD-2013-BI-12629BP

PATIENT
  Age: 89 Year
  Sex: Female
  Weight: 73 kg

DRUGS (8)
  1. SPIRIVA [Suspect]
     Indication: BRONCHITIS CHRONIC
     Dosage: 18 MCG
     Route: 055
     Dates: start: 201202
  2. LISINOPRIL [Concomitant]
     Dosage: 40 MG
     Route: 048
  3. HYDROCHLOROTHIAZIDE [Concomitant]
     Indication: HYPERTENSION
     Dosage: 12.5 MG
     Route: 048
  4. SYNTHROID [Concomitant]
     Indication: HYPOTHYROIDISM
     Dosage: 0.125 MG
     Route: 048
  5. AMLODIPINE [Concomitant]
     Dosage: 10 MG
     Route: 048
  6. ADVAIR [Concomitant]
     Indication: ASTHMA
     Dosage: STRENGTH: 250/50; DAILY DOSE: 500/100
     Route: 055
  7. ZEBETA [Concomitant]
     Dosage: 10 MG
     Route: 048
  8. PREVACID [Concomitant]
     Indication: GASTROOESOPHAGEAL REFLUX DISEASE
     Dosage: 30 MG
     Route: 048

REACTIONS (3)
  - Cough [Not Recovered/Not Resolved]
  - Dyspnoea [Recovered/Resolved]
  - Product quality issue [Recovered/Resolved]
